FAERS Safety Report 10149024 (Version 2)
Quarter: 2014Q2

REPORT INFORMATION
  Report Type: Report from Study
  Country: BR (occurrence: BR)
  Receive Date: 20140502
  Receipt Date: 20140502
  Transmission Date: 20141212
  Serious: Yes (Death, Hospitalization, Other)
  Sender: FDA-Public Use
  Company Number: BR-US-EMD SERONO, INC.-7224059

PATIENT
  Age: 41 Year
  Sex: Female

DRUGS (13)
  1. REBIF [Suspect]
     Indication: RELAPSING-REMITTING MULTIPLE SCLEROSIS
     Dates: start: 20090921, end: 201311
  2. REBIF [Suspect]
     Dates: end: 20140313
  3. CRANBERRY                          /01512301/ [Concomitant]
     Indication: PRODUCT USED FOR UNKNOWN INDICATION
  4. TYLEX                              /00116401/ [Concomitant]
     Indication: PAIN
  5. TANDRILAX [Concomitant]
     Indication: PAIN
  6. NAPROXEN [Concomitant]
     Indication: PAIN
  7. OMEGA 3 [Concomitant]
     Indication: PRODUCT USED FOR UNKNOWN INDICATION
  8. VITAMIN C                          /00008001/ [Concomitant]
     Indication: PRODUCT USED FOR UNKNOWN INDICATION
  9. VITAMIN D                          /00107901/ [Concomitant]
     Indication: PRODUCT USED FOR UNKNOWN INDICATION
     Dosage: 22 DROPS
  10. RIVOTRIL [Concomitant]
     Indication: PRODUCT USED FOR UNKNOWN INDICATION
  11. AMYTRIL [Concomitant]
     Indication: PRODUCT USED FOR UNKNOWN INDICATION
  12. GABAPENTIN [Concomitant]
     Indication: PRODUCT USED FOR UNKNOWN INDICATION
  13. FEMINA [Concomitant]
     Indication: PRODUCT USED FOR UNKNOWN INDICATION

REACTIONS (11)
  - Death [Fatal]
  - Pulmonary sepsis [Unknown]
  - Pneumonia [Unknown]
  - Multi-organ failure [Unknown]
  - Urinary tract infection [Unknown]
  - Multiple sclerosis relapse [Recovered/Resolved]
  - Paraesthesia [Unknown]
  - Paraesthesia [Not Recovered/Not Resolved]
  - Gait disturbance [Not Recovered/Not Resolved]
  - Musculoskeletal discomfort [Unknown]
  - Dry skin [Unknown]
